FAERS Safety Report 16264677 (Version 1)
Quarter: 2019Q2

REPORT INFORMATION
  Report Type: Spontaneous
  Country: US (occurrence: US)
  Receive Date: 20190502
  Receipt Date: 20190502
  Transmission Date: 20190711
  Serious: No
  Sender: FDA-Public Use
  Company Number: US-PFIZER INC-2019185263

PATIENT
  Sex: Female

DRUGS (3)
  1. RIVAROXABAN [Suspect]
     Active Substance: RIVAROXABAN
     Dosage: UNK
  2. AMIODARONE HCL [Suspect]
     Active Substance: AMIODARONE HYDROCHLORIDE
     Dosage: UNK
  3. PROPAFENONE. [Suspect]
     Active Substance: PROPAFENONE
     Dosage: UNK

REACTIONS (1)
  - Drug hypersensitivity [Unknown]
